FAERS Safety Report 9537864 (Version 3)
Quarter: 2014Q1

REPORT INFORMATION
  Report Type: Report from Study
  Country: US (occurrence: US)
  Receive Date: 20130919
  Receipt Date: 20140320
  Transmission Date: 20141002
  Serious: Yes (Other)
  Sender: FDA-Public Use
  Company Number: US-ROCHE-1272641

PATIENT
  Age: 37 Year
  Sex: Male

DRUGS (17)
  1. LUCENTIS [Suspect]
     Indication: DIABETIC RETINAL OEDEMA
     Dosage: OS (LEFT EYE)
     Route: 050
  2. LUCENTIS [Suspect]
     Indication: DIABETIC RETINOPATHY
  3. LUCENTIS [Suspect]
     Indication: VITREOUS HAEMORRHAGE
  4. ALPHAGAN [Concomitant]
     Dosage: EVERY 12 HOURS
     Route: 065
     Dates: start: 20130513
  5. ALPHAGAN [Concomitant]
     Route: 065
     Dates: start: 20130620
  6. LIPITOR [Concomitant]
     Route: 065
     Dates: start: 20130620
  7. TOPROL XL [Concomitant]
     Route: 065
     Dates: start: 20130620
  8. NEURONTIN (UNITED STATES) [Concomitant]
     Route: 065
     Dates: start: 20130620
  9. LEXAPRO [Concomitant]
     Route: 065
     Dates: start: 20130620
  10. LEVOTHYROXINE [Concomitant]
     Route: 065
     Dates: start: 20130620
  11. LASIX [Concomitant]
     Route: 065
     Dates: start: 20130620
  12. TYLENOL [Concomitant]
     Route: 065
     Dates: start: 20130620
  13. SYNTHROID [Concomitant]
     Route: 065
     Dates: start: 20130620
  14. POTASSIUM CHLORIDE [Concomitant]
  15. PHENYLEPHRINE [Concomitant]
     Route: 065
  16. TROPICAMIDE [Concomitant]
     Route: 065
  17. PROPARACAINE [Concomitant]

REACTIONS (12)
  - Intracranial aneurysm [Unknown]
  - Vitreous floaters [Unknown]
  - Diplopia [Unknown]
  - Visual impairment [Unknown]
  - Glucose tolerance impaired [Unknown]
  - Hypertension [Unknown]
  - Pain [Recovering/Resolving]
  - Ocular hyperaemia [Not Recovered/Not Resolved]
  - Eye haemorrhage [Unknown]
  - Intraocular pressure increased [Unknown]
  - Diplopia [Unknown]
  - Eye disorder [Unknown]
